FAERS Safety Report 8880259 (Version 2)
Quarter: 2013Q2

REPORT INFORMATION
  Report Type: Spontaneous
  Country: ZA (occurrence: ZA)
  Receive Date: 20121031
  Receipt Date: 20130426
  Transmission Date: 20140414
  Serious: Yes (Hospitalization)
  Sender: FDA-Public Use
  Company Number: PHHY2012ZA097540

PATIENT
  Sex: 0

DRUGS (6)
  1. OFLOXACIN [Suspect]
     Indication: TUBERCULOSIS
  2. STREPTOMYCIN [Suspect]
     Indication: TUBERCULOSIS
  3. ETHIONAMIDE [Suspect]
     Indication: TUBERCULOSIS
  4. RIFAMPICIN [Concomitant]
  5. PYRAZINAMIDE [Concomitant]
  6. ETHAMBUTOL [Concomitant]

REACTIONS (10)
  - Drug hypersensitivity [Unknown]
  - Pyrexia [Unknown]
  - Headache [Unknown]
  - Pruritus [Unknown]
  - Conjunctivitis [Unknown]
  - Generalised oedema [Unknown]
  - Burning sensation [Unknown]
  - Hepatitis [Unknown]
  - Neuropathy peripheral [Not Recovered/Not Resolved]
  - Eosinophilia [Unknown]
